FAERS Safety Report 4575265-6 (Version None)
Quarter: 2005Q1

REPORT INFORMATION
  Report Type: 
  Country: None (occurrence: None)
  Receive Date: 20050209
  Receipt Date: 20000317
  Transmission Date: 20050727
  Serious: Yes (Other)
  Sender: FDA-Public Use
  Company Number: AU-ABBOTT-00P-008-0088335-00

PATIENT
  Age: 64 Year
  Sex: Female

DRUGS (1)
  1. KLACID [Suspect]
     Indication: CELLULITIS
     Route: 048
     Dates: start: 20000306, end: 20000307

REACTIONS (4)
  - HYPERSENSITIVITY [None]
  - PRURITUS [None]
  - SKIN BURNING SENSATION [None]
  - URTICARIA [None]
